FAERS Safety Report 23614461 (Version 1)
Quarter: 2024Q1

REPORT INFORMATION
  Report Type: Report from Study
  Country: US (occurrence: US)
  Receive Date: 20240311
  Receipt Date: 20240311
  Transmission Date: 20240410
  Serious: Yes (Other)
  Sender: FDA-Public Use
  Company Number: US-JAZZ PHARMACEUTICALS-2023-US-010690

PATIENT
  Sex: Female

DRUGS (20)
  1. SODIUM OXYBATE [Suspect]
     Active Substance: SODIUM OXYBATE
     Indication: Narcolepsy
     Dosage: UNK
  2. SODIUM OXYBATE [Suspect]
     Active Substance: SODIUM OXYBATE
     Indication: Somnolence
  3. SODIUM OXYBATE [Suspect]
     Active Substance: SODIUM OXYBATE
     Indication: Cataplexy
  4. ALLEGRA ALLERGY [Concomitant]
     Active Substance: FEXOFENADINE HYDROCHLORIDE
     Dosage: 0000
     Dates: start: 20180101
  5. FLONASE ALLERGY RELIEF [Concomitant]
     Active Substance: FLUTICASONE PROPIONATE
     Dosage: 0000
     Dates: start: 20190101
  6. SAVELLA [Concomitant]
     Active Substance: MILNACIPRAN HYDROCHLORIDE
     Dosage: 0000
     Dates: start: 20200101
  7. OSTEO BI-FLEX EASE [Concomitant]
     Dosage: CAPLET
     Dates: start: 20150101
  8. HERBALS\TURMERIC [Concomitant]
     Active Substance: HERBALS\TURMERIC
     Dosage: 0000
     Dates: start: 20200101
  9. PROBIOTIC BLEND [Concomitant]
     Dosage: 0000
     Dates: start: 20210101
  10. DOCUSATE SODIUM [Concomitant]
     Active Substance: DOCUSATE SODIUM
     Dosage: 0000
     Dates: start: 20190101
  11. MIRALAX [Concomitant]
     Active Substance: POLYETHYLENE GLYCOL 3350
     Dosage: 0000
     Dates: start: 20220601
  12. DIGESTIVE ENZYMES V COMPLEX [Concomitant]
     Dosage: 0000
     Dates: start: 20220101
  13. MINERALS\VITAMINS [Concomitant]
     Active Substance: MINERALS\VITAMINS
     Dosage: SOFTGEL
     Dates: start: 20150101
  14. RETAINE MGD [Concomitant]
     Active Substance: LIGHT MINERAL OIL\MINERAL OIL
     Dosage: 0000
     Dates: start: 20200101
  15. BIOTIN [Concomitant]
     Active Substance: BIOTIN
     Dosage: 0000
     Dates: start: 20200101
  16. GEBAUER^S SPRAY AND STRETCH [Concomitant]
     Dosage: 0000
     Dates: start: 20130101
  17. SODIUM SULFACETAMIDE [Concomitant]
     Active Substance: SULFACETAMIDE SODIUM
     Dosage: 10% WASH
     Dates: start: 20210101
  18. IPRATROPIUM [Concomitant]
     Active Substance: IPRATROPIUM
     Indication: Product used for unknown indication
     Dosage: 0.06% SPRAY
     Dates: start: 20230606
  19. VITAMIN D3 [Concomitant]
     Active Substance: CHOLECALCIFEROL
     Indication: Product used for unknown indication
     Dosage: UNK
     Dates: start: 20230901
  20. RECLAST [Concomitant]
     Active Substance: ZOLEDRONIC ACID
     Indication: Product used for unknown indication
     Dosage: 5 MG/100 ML SOLUTION
     Dates: start: 20230901

REACTIONS (5)
  - Surgery [Unknown]
  - Drug ineffective [Unknown]
  - Influenza [Unknown]
  - Rhinitis [Unknown]
  - Vaginal prolapse [Unknown]
